FAERS Safety Report 25079643 (Version 2)
Quarter: 2025Q1

REPORT INFORMATION
  Report Type: Spontaneous
  Country: US (occurrence: US)
  Receive Date: 20250314
  Receipt Date: 20250318
  Transmission Date: 20250409
  Serious: Yes (Life-Threatening, Hospitalization, Other)
  Sender: PFIZER
  Company Number: US-MLMSERVICE-20250305-PI436957-00201-1

PATIENT
  Age: 92 Year
  Sex: Male

DRUGS (1)
  1. LIDOCAINE HYDROCHLORIDE [Suspect]
     Active Substance: LIDOCAINE HYDROCHLORIDE
     Indication: Local anaesthesia
     Route: 043

REACTIONS (4)
  - Local anaesthetic systemic toxicity [Recovered/Resolved]
  - Cardiac arrest [Recovered/Resolved]
  - Mental impairment [Recovered/Resolved]
  - Generalised tonic-clonic seizure [Recovered/Resolved]
